FAERS Safety Report 5394638-5 (Version None)
Quarter: 2007Q3

REPORT INFORMATION
  Report Type: 
  Country: None (occurrence: None)
  Receive Date: 20070723
  Receipt Date: 20070702
  Transmission Date: 20080115
  Serious: Yes (Death, Hospitalization, Other)
  Sender: FDA-Public Use
  Company Number: US-PFIZER INC-2007031124

PATIENT
  Sex: Female
  Weight: 101.6 kg

DRUGS (5)
  1. BEXTRA [Suspect]
     Indication: ARTHRITIS
     Route: 048
  2. VIOXX [Suspect]
     Indication: ARTHRITIS
     Route: 048
     Dates: start: 20030301, end: 20040228
  3. TOPROL-XL [Concomitant]
     Dates: start: 20030107, end: 20031218
  4. FUROSEMIDE [Concomitant]
     Dates: start: 20030107, end: 20031218
  5. LIPITOR [Concomitant]
     Dates: start: 20030527, end: 20031218

REACTIONS (1)
  - CEREBROVASCULAR ACCIDENT [None]
